FAERS Safety Report 9384028 (Version 2)
Quarter: 2013Q3

REPORT INFORMATION
  Report Type: Spontaneous
  Country: GB (occurrence: GB)
  Receive Date: 20130705
  Receipt Date: 20130716
  Transmission Date: 20140515
  Serious: Yes (Other)
  Sender: FDA-Public Use
  Company Number: GB-AMGEN-GBRSP2013040926

PATIENT
  Age: 49 Year
  Sex: Female
  Weight: 72 kg

DRUGS (13)
  1. XGEVA [Suspect]
     Indication: METASTASES TO BONE
     Dosage: 120 MG, Q4WK
     Route: 058
     Dates: start: 20130529
  2. XGEVA [Suspect]
     Indication: METASTASIS
  3. ADCAL                              /00056901/ [Concomitant]
     Dosage: UNK, 2 TABLETS
     Dates: start: 2011
  4. DICLOFENAC [Concomitant]
     Indication: PAIN
     Dosage: 50 MG, TID
     Route: 048
     Dates: start: 20130301
  5. LETROZOLE [Concomitant]
     Dosage: 25 MG, QD
     Route: 048
     Dates: start: 20130115
  6. OMEPRAZOLE [Concomitant]
     Dosage: 20 MG, QD
     Dates: start: 201303
  7. PARACETAMOL [Concomitant]
     Indication: PAIN
     Dosage: 500 MG, Q4H
     Route: 048
     Dates: start: 20130115
  8. SENNA                              /00142201/ [Concomitant]
     Indication: ABDOMINAL DISCOMFORT
     Dosage: UNK UNK, BID
     Dates: start: 201303
  9. TRAMADOL [Concomitant]
     Indication: PAIN
     Dosage: 50 MG, Q3H
     Route: 048
     Dates: start: 20130115
  10. PREGABALIN [Concomitant]
     Indication: PAIN
     Dosage: 75 MG, BID
     Route: 048
     Dates: start: 20130501
  11. CLONIDINE [Concomitant]
     Indication: HOT FLUSH
     Dosage: 25 MG, BID, 3 TABLETS
     Dates: start: 2011
  12. PIRITON [Concomitant]
     Indication: HYPERSENSITIVITY
     Dosage: UNK UNK, QD, 1 TABLET
     Dates: start: 20130605
  13. PREDNISOLONE [Concomitant]
     Indication: HYPERSENSITIVITY
     Dosage: 30 MG, QD
     Dates: start: 20130605

REACTIONS (25)
  - Hypersensitivity [Recovered/Resolved]
  - Rash generalised [Recovered/Resolved]
  - Swelling [Not Recovered/Not Resolved]
  - Oropharyngeal pain [Recovered/Resolved]
  - Urticaria [Recovered/Resolved]
  - Pruritus [Recovered/Resolved]
  - Local swelling [Recovered/Resolved]
  - Blister [Recovered/Resolved]
  - Bloody discharge [Unknown]
  - Swelling face [Recovered/Resolved]
  - Aphonia [Unknown]
  - Mouth ulceration [Unknown]
  - Local swelling [Recovered/Resolved]
  - Paraesthesia [Unknown]
  - Rash macular [Unknown]
  - Throat tightness [Recovered/Resolved]
  - Skin lesion [Unknown]
  - Scar [Unknown]
  - Pharyngeal oedema [Recovered/Resolved]
  - Wound secretion [Unknown]
  - Seasonal allergy [Unknown]
  - Discomfort [Unknown]
  - Wheezing [Recovered/Resolved]
  - Erythema [Recovered/Resolved]
  - Dyspnoea [Unknown]
